FAERS Safety Report 25389302 (Version 1)
Quarter: 2025Q2

REPORT INFORMATION
  Report Type: Spontaneous
  Country: US (occurrence: None)
  Receive Date: 20250602
  Receipt Date: 20250602
  Transmission Date: 20250717
  Serious: Yes (unspecified)
  Sender: FDA-CTU
  Company Number: None

PATIENT
  Age: 39 Year
  Sex: Male
  Weight: 62 kg

DRUGS (1)
  1. AMOXICILLIN [Suspect]
     Active Substance: AMOXICILLIN
     Indication: Tooth infection
     Dosage: FREQUENCY : 3 TIMES A DAY;?
     Route: 048
     Dates: start: 20250409, end: 20250411

REACTIONS (4)
  - Dyspnoea [None]
  - Obstructive airways disorder [None]
  - Stridor [None]
  - Hypoxia [None]

NARRATIVE: CASE EVENT DATE: 20250411
